FAERS Safety Report 24020447 (Version 1)
Quarter: 2024Q2

REPORT INFORMATION
  Report Type: Spontaneous
  Country: US (occurrence: None)
  Receive Date: 20240627
  Receipt Date: 20240627
  Transmission Date: 20240715
  Serious: No
  Sender: FDA-Public Use
  Company Number: None

PATIENT
  Age: 56 Year
  Sex: Female
  Weight: 67.13 kg

DRUGS (1)
  1. HYDROQUINONE [Suspect]
     Active Substance: HYDROQUINONE
     Dosage: OTHER QUANTITY : 1 APPLICATION BID;?OTHER FREQUENCY : 3 MONTHS;?OTHER ROUTE : 2 MONTHS MAYBE A LITTL
     Route: 050
     Dates: start: 202402, end: 20240428

REACTIONS (6)
  - Pain of skin [None]
  - Blood pressure increased [None]
  - Blepharospasm [None]
  - Peripheral coldness [None]
  - Feeling hot [None]
  - Antinuclear antibody positive [None]

NARRATIVE: CASE EVENT DATE: 20240501
